FAERS Safety Report 4939982-8 (Version None)
Quarter: 2006Q1

REPORT INFORMATION
  Report Type: 
  Country: None (occurrence: None)
  Receive Date: 20060310
  Receipt Date: 20060307
  Transmission Date: 20060701
  Serious: Yes (Life-Threatening)
  Sender: FDA-Public Use
  Company Number: US-BRISTOL-MYERS SQUIBB COMPANY-13307418

PATIENT
  Age: 74 Year
  Sex: Male
  Weight: 86 kg

DRUGS (17)
  1. CYTOXAN [Suspect]
     Indication: LYMPHOMA
     Route: 042
     Dates: start: 20060304, end: 20060304
  2. DOXORUBICIN HCL [Suspect]
     Indication: LYMPHOMA
     Route: 042
     Dates: start: 20060304, end: 20060304
  3. VINCRISTINE SULFATE [Suspect]
     Indication: LYMPHOMA
     Route: 042
     Dates: start: 20060304, end: 20060304
  4. HYDROMORPHONE HCL [Concomitant]
     Indication: PREMEDICATION
     Route: 042
  5. ZOFRAN [Concomitant]
     Indication: PREMEDICATION
     Route: 042
  6. HYDROCORTISONE [Concomitant]
     Indication: PREMEDICATION
     Route: 042
  7. DEXAMETHASONE [Concomitant]
     Indication: PREMEDICATION
     Route: 042
  8. VICODIN [Concomitant]
     Dates: start: 20060228
  9. LOPRESSOR [Concomitant]
     Dates: start: 20060301
  10. LEVALBUTEROL HCL [Concomitant]
     Route: 055
     Dates: start: 20060304
  11. SOLU-MEDROL [Concomitant]
     Route: 042
     Dates: start: 20060304
  12. HEPARIN [Concomitant]
     Route: 058
     Dates: start: 20060304
  13. LEVOFLOXACIN [Concomitant]
     Route: 042
     Dates: start: 20060228
  14. XANAX [Concomitant]
     Dates: start: 20060227
  15. LASIX [Concomitant]
     Route: 042
     Dates: start: 20060303, end: 20060303
  16. ANCEF [Concomitant]
     Route: 042
     Dates: start: 20060303, end: 20060303
  17. ZITHROMAX [Concomitant]
     Route: 042
     Dates: start: 20060222, end: 20060222

REACTIONS (2)
  - OXYGEN SATURATION DECREASED [None]
  - TACHYCARDIA [None]
